FAERS Safety Report 6216448-9 (Version None)
Quarter: 2009Q2

REPORT INFORMATION
  Report Type: 
  Country: None (occurrence: None)
  Receive Date: 20090605
  Receipt Date: 20090527
  Transmission Date: 20091009
  Serious: Yes (Hospitalization)
  Sender: FDA-Public Use
  Company Number: FR-AVENTIS-200911971FR

PATIENT
  Age: 89 Year
  Sex: Female

DRUGS (1)
  1. RIFADIN [Suspect]
     Route: 048
     Dates: start: 20090421, end: 20090426

REACTIONS (3)
  - CHOLESTASIS [None]
  - HYPERBILIRUBINAEMIA [None]
  - JAUNDICE [None]
